FAERS Safety Report 4640981-4 (Version None)
Quarter: 2005Q2

REPORT INFORMATION
  Report Type: 
  Country: None (occurrence: None)
  Receive Date: 20050421
  Receipt Date: 20050412
  Transmission Date: 20051028
  Serious: Yes (Life-Threatening, Hospitalization)
  Sender: FDA-Public Use
  Company Number: DE-BOEHRINGER INGELHEIM PHARMACEUTICALS, INC.-2005-DE-01440BY

PATIENT
  Sex: Female

DRUGS (1)
  1. KINZALKOMB [Suspect]
     Indication: HYPERTENSION
     Route: 048
     Dates: start: 20050210, end: 20050210

REACTIONS (5)
  - ALVEOLITIS ALLERGIC [None]
  - ANAPHYLACTIC SHOCK [None]
  - CARDIOVASCULAR DISORDER [None]
  - DYSPNOEA [None]
  - NAUSEA [None]
